FAERS Safety Report 6661993-5 (Version None)
Quarter: 2010Q1

REPORT INFORMATION
  Report Type: 
  Country: None (occurrence: None)
  Receive Date: 20100331
  Receipt Date: 20091119
  Transmission Date: 20100710
  Serious: Yes (Other)
  Sender: FDA-Public Use
  Company Number: US-BRISTOL-MYERS SQUIBB COMPANY-14865505

PATIENT
  Sex: Male

DRUGS (5)
  1. ERBITUX [Suspect]
     Indication: COLORECTAL CANCER
     Dosage: FIRST INFUSION
  2. BENADRYL [Concomitant]
     Indication: PREMEDICATION
  3. ZOFRAN [Concomitant]
     Indication: PREMEDICATION
  4. DECADRON [Concomitant]
     Indication: PREMEDICATION
  5. TAGAMET [Concomitant]
     Indication: PREMEDICATION

REACTIONS (2)
  - CHEST PAIN [None]
  - HYPOTENSION [None]
